FAERS Safety Report 5342683-8 (Version None)
Quarter: 2007Q2

REPORT INFORMATION
  Report Type: 
  Country: None (occurrence: None)
  Receive Date: 20070601
  Receipt Date: 20070521
  Transmission Date: 20071010
  Serious: Yes (Death, Hospitalization, Other)
  Sender: FDA-Public Use
  Company Number: US-PFIZER INC-2007041338

PATIENT
  Sex: Female
  Weight: 93.4 kg

DRUGS (1)
  1. CELEBREX [Suspect]

REACTIONS (1)
  - WEGENER'S GRANULOMATOSIS [None]
